FAERS Safety Report 16771243 (Version 1)
Quarter: 2019Q3

REPORT INFORMATION
  Report Type: Spontaneous
  Country: DE (occurrence: DE)
  Receive Date: 20190904
  Receipt Date: 20190904
  Transmission Date: 20191005
  Serious: Yes (Death, Hospitalization, Other)
  Sender: FDA-Public Use
  Company Number: DE-ASTRAZENECA-2019SF25025

PATIENT
  Age: 73 Year
  Sex: Female
  Weight: 64 kg

DRUGS (26)
  1. AMINOMIX /03395601/ [Suspect]
     Active Substance: AMINO ACIDS\DEXTROSE\ELECTROLYTES NOS
     Indication: PARENTERAL NUTRITION
     Route: 042
     Dates: start: 20010415, end: 20010427
  2. ANTRA [Suspect]
     Active Substance: OMEPRAZOLE
     Indication: PROPHYLAXIS
     Route: 042
     Dates: start: 20010426, end: 20010505
  3. CIPROBAY [Suspect]
     Active Substance: CIPROFLOXACIN
     Indication: CHOLANGITIS
     Route: 042
     Dates: start: 20010426, end: 20010501
  4. ALDACTONE [Suspect]
     Active Substance: SPIRONOLACTONE
     Indication: OEDEMA
     Route: 048
     Dates: start: 20010415, end: 20010425
  5. MCP CT-ARZNEIMITTEL DROP (METOCLOPRAMIDE HYDROCHLORIDE) [Suspect]
     Active Substance: METOCLOPRAMIDE HYDROCHLORIDE
     Indication: NAUSEA
     Route: 048
     Dates: start: 20010508, end: 20010508
  6. JONOSTERIL [Concomitant]
     Route: 042
     Dates: start: 20010415, end: 20010505
  7. SODIUM CHLORIDE. [Concomitant]
     Active Substance: SODIUM CHLORIDE
     Route: 042
     Dates: start: 20010508, end: 20010508
  8. CLONT (METRONIDAZOLE) [Suspect]
     Active Substance: METRONIDAZOLE
     Indication: CHOLANGITIS
     Route: 042
     Dates: start: 20010426, end: 20010501
  9. CHOLSPASMIN (HYMECROMONE) [Suspect]
     Active Substance: HYMECROMONE
     Route: 042
     Dates: start: 20010510
  10. INSULIN PROTAPHAN HUMAN [Suspect]
     Active Substance: INSULIN HUMAN
     Indication: DIABETES MELLITUS
     Dosage: 16IU-12IU-8IU
     Route: 058
     Dates: start: 20010415, end: 20010426
  11. LOPERAMIDE [Suspect]
     Active Substance: LOPERAMIDE
     Indication: DIARRHOEA
     Dosage: 1.0DF ONCE/SINGLE ADMINISTRATION
     Route: 048
     Dates: start: 20010430, end: 20010430
  12. VOMEX A [Suspect]
     Active Substance: DIMENHYDRINATE
     Indication: NAUSEA
     Dosage: 1.0DF ONCE/SINGLE ADMINISTRATION
     Route: 042
     Dates: start: 20010508, end: 20010508
  13. MCP CT-ARZNEIMITTEL (METOCLOPRAMIDE HYDROCHLORIDE) [Suspect]
     Active Substance: METOCLOPRAMIDE HYDROCHLORIDE
     Indication: NAUSEA
     Dosage: 1 DF, SINGLE
     Route: 042
     Dates: start: 20010508, end: 20010508
  14. SOLU-DECORTIN-H [Suspect]
     Active Substance: PREDNISOLONE SODIUM SUCCINATE
     Indication: PRURITUS
     Route: 042
     Dates: start: 20010511, end: 20010511
  15. CARBIMAZOLE [Suspect]
     Active Substance: CARBIMAZOLE
     Indication: HYPERTHYROIDISM
     Route: 048
  16. ETILEFRINE [Suspect]
     Active Substance: ETILEFRINE
     Indication: HYPOTENSION
     Dosage: 30.0GTT ONCE/SINGLE ADMINISTRATION
     Route: 048
     Dates: start: 20010508, end: 20010508
  17. GLUCOSE [Suspect]
     Active Substance: DEXTROSE
     Indication: PARENTERAL NUTRITION
     Route: 042
     Dates: start: 20010415, end: 20010505
  18. KALINOR [Concomitant]
     Indication: HYPOKALAEMIA
     Route: 048
     Dates: start: 20010506
  19. PANTOZOL [Suspect]
     Active Substance: PANTOPRAZOLE SODIUM
     Route: 048
     Dates: start: 20010506
  20. FORTRAL [Suspect]
     Active Substance: PENTAZOCINE
     Indication: PAIN
     Dosage: 1.0DF ONCE/SINGLE ADMINISTRATION
     Route: 042
     Dates: start: 20010508, end: 20010508
  21. KALIUMKLORID [Concomitant]
     Indication: HYPOKALAEMIA
     Dosage: UNK
     Route: 042
     Dates: start: 20010426, end: 20010501
  22. CLONT (METRONIDAZOLE) [Suspect]
     Active Substance: METRONIDAZOLE
     Indication: CHOLANGITIS
     Route: 048
     Dates: start: 20010415, end: 20010426
  23. INSULIN [Suspect]
     Active Substance: INSULIN NOS
     Indication: PARENTERAL NUTRITION
     Dosage: UNK
     Route: 042
     Dates: start: 20010415, end: 20010505
  24. CIPROBAY [Suspect]
     Active Substance: CIPROFLOXACIN
     Indication: CHOLANGITIS
     Route: 048
     Dates: start: 20010415, end: 20010426
  25. BAYPEN [Suspect]
     Active Substance: MEZLOCILLIN SODIUM
     Indication: CHOLANGITIS
     Route: 042
     Dates: start: 20010428, end: 20010501
  26. PANTOZOL [Suspect]
     Active Substance: PANTOPRAZOLE SODIUM
     Indication: PROPHYLAXIS
     Route: 048
     Dates: start: 20010415, end: 20010426

REACTIONS (11)
  - Stevens-Johnson syndrome [Fatal]
  - Conjunctivitis [Fatal]
  - Blister [Fatal]
  - Skin lesion [Fatal]
  - Rash [Fatal]
  - Skin exfoliation [Fatal]
  - Circulatory collapse [Fatal]
  - Toxic epidermal necrolysis [Fatal]
  - Lip erosion [Fatal]
  - Cardiac arrest [Fatal]
  - Pruritus [Fatal]

NARRATIVE: CASE EVENT DATE: 20010511
